FAERS Safety Report 16863136 (Version 2)
Quarter: 2019Q4

REPORT INFORMATION
  Report Type: Spontaneous
  Country: US (occurrence: US)
  Receive Date: 20190927
  Receipt Date: 20191120
  Transmission Date: 20200122
  Serious: Yes (Hospitalization, Disabling)
  Sender: FDA-Public Use
  Company Number: US-ASTRAZENECA-2019SF34801

PATIENT
  Sex: Female
  Weight: 44 kg

DRUGS (4)
  1. BRILINTA [Suspect]
     Active Substance: TICAGRELOR
     Indication: ANEURYSM
     Route: 048
     Dates: start: 201906, end: 201909
  2. BRILINTA [Suspect]
     Active Substance: TICAGRELOR
     Indication: BRAIN OPERATION
     Route: 048
     Dates: start: 201906, end: 201909
  3. BRILINTA [Suspect]
     Active Substance: TICAGRELOR
     Indication: ANEURYSM
     Route: 048
     Dates: start: 20190921
  4. BRILINTA [Suspect]
     Active Substance: TICAGRELOR
     Indication: BRAIN OPERATION
     Route: 048
     Dates: start: 20190921

REACTIONS (2)
  - Product dose omission [Unknown]
  - Cerebrovascular accident [Recovering/Resolving]
